FAERS Safety Report 8870359 (Version 2)
Quarter: 2013Q1

REPORT INFORMATION
  Report Type: Spontaneous
  Country: US (occurrence: US)
  Receive Date: 20121029
  Receipt Date: 20130312
  Transmission Date: 20140127
  Serious: Yes (Other)
  Sender: FDA-Public Use
  Company Number: US-AMGEN-USASP2012067554

PATIENT
  Age: 63 Year
  Sex: Female

DRUGS (1)
  1. ENBREL [Suspect]
     Indication: RHEUMATOID ARTHRITIS
     Dosage: 50 MG, WEEKLY
     Dates: start: 20120828

REACTIONS (16)
  - Depression [Not Recovered/Not Resolved]
  - Haematoma [Not Recovered/Not Resolved]
  - Animal bite [Recovered/Resolved]
  - Erythema [Recovered/Resolved]
  - Alopecia [Not Recovered/Not Resolved]
  - Stress [Not Recovered/Not Resolved]
  - Contusion [Not Recovered/Not Resolved]
  - Skin atrophy [Not Recovered/Not Resolved]
  - Tooth fracture [Not Recovered/Not Resolved]
  - Scratch [Recovered/Resolved]
  - Skin exfoliation [Not Recovered/Not Resolved]
  - Impaired healing [Not Recovered/Not Resolved]
  - Laceration [Not Recovered/Not Resolved]
  - Urticaria [Not Recovered/Not Resolved]
  - Pruritus [Not Recovered/Not Resolved]
  - Lip blister [Not Recovered/Not Resolved]
